FAERS Safety Report 24220802 (Version 1)
Quarter: 2024Q3

REPORT INFORMATION
  Report Type: Spontaneous
  Country: US (occurrence: US)
  Receive Date: 20240818
  Receipt Date: 20240818
  Transmission Date: 20241017
  Serious: No
  Sender: ABBVIE
  Company Number: US-ABBVIE-5874211

PATIENT

DRUGS (1)
  1. UPADACITINIB [Suspect]
     Active Substance: UPADACITINIB
     Indication: Skin disorder
     Route: 048

REACTIONS (1)
  - Muscle strain [Recovering/Resolving]

NARRATIVE: CASE EVENT DATE: 20240101
